FAERS Safety Report 5023194-6 (Version None)
Quarter: 2006Q2

REPORT INFORMATION
  Report Type: 
  Country: None (occurrence: None)
  Receive Date: 20060612
  Receipt Date: 20060602
  Transmission Date: 20061013
  Serious: Yes (Other)
  Sender: FDA-Public Use
  Company Number: DE-JNJFOC-20060600712

PATIENT
  Age: 40 Year
  Weight: 106 kg

DRUGS (4)
  1. REMICADE [Suspect]
     Route: 042
  2. REMICADE [Suspect]
     Route: 042
  3. REMICADE [Suspect]
     Indication: PSORIATIC ARTHROPATHY
     Route: 042
  4. TILIDIN [Concomitant]
     Indication: PAIN
     Route: 065

REACTIONS (3)
  - HEPATIC STEATOSIS [None]
  - HEPATOMEGALY [None]
  - TRANSAMINASES INCREASED [None]
